FAERS Safety Report 8613927-1 (Version None)
Quarter: 2012Q3

REPORT INFORMATION
  Report Type: 
  Country: None (occurrence: None)
  Receive Date: 20120823
  Receipt Date: 20120810
  Transmission Date: 20120928
  Serious: Yes (Hospitalization)
  Sender: FDA-Public Use
  Company Number: US-009507513-1208USA005866

PATIENT

DRUGS (1)
  1. INTEGRILIN [Suspect]
     Dosage: UNK
     Dates: end: 20120810

REACTIONS (1)
  - CORONARY ARTERY DISEASE [None]
